FAERS Safety Report 22130843 (Version 1)
Quarter: 2023Q1

REPORT INFORMATION
  Report Type: Spontaneous
  Country: US (occurrence: None)
  Receive Date: 20230322
  Receipt Date: 20230322
  Transmission Date: 20230417
  Serious: No
  Sender: FDA-Public Use
  Company Number: None

PATIENT
  Age: 66 Year
  Sex: Female
  Weight: 58 kg

DRUGS (1)
  1. REPATHA [Suspect]
     Active Substance: EVOLOCUMAB
     Indication: Type IIa hyperlipidaemia
     Dosage: FREQUENCY : EVERY OTHER WEEK;?OTHER ROUTE : SUBDERMAL;?
     Route: 050
     Dates: start: 20221123, end: 20230203

REACTIONS (5)
  - Neck pain [None]
  - Pain in extremity [None]
  - Scar pain [None]
  - Hypotension [None]
  - Alopecia [None]

NARRATIVE: CASE EVENT DATE: 20230322
